FAERS Safety Report 7081804-6 (Version None)
Quarter: 2010Q4

REPORT INFORMATION
  Report Type: 
  Country: None (occurrence: None)
  Receive Date: 20101103
  Receipt Date: 20101021
  Transmission Date: 20110411
  Serious: Yes (Other)
  Sender: FDA-Public Use
  Company Number: US-ELI_LILLY_AND_COMPANY-US201009005958

PATIENT
  Sex: Male

DRUGS (6)
  1. STRATTERA [Suspect]
     Indication: DISTURBANCE IN ATTENTION
     Dosage: 50 MG, DAILY (1/D)
     Dates: start: 20080409, end: 20100709
  2. STRATTERA [Suspect]
     Dates: start: 20100916
  3. RITALIN [Concomitant]
  4. ADDERALL 10 [Concomitant]
  5. DAYTRANA [Concomitant]
  6. MARIJUANA [Concomitant]

REACTIONS (19)
  - ABDOMINAL PAIN [None]
  - ACTIVITIES OF DAILY LIVING IMPAIRED [None]
  - AGGRESSION [None]
  - AGITATION [None]
  - ANXIETY [None]
  - APATHY [None]
  - ASTHENIA [None]
  - BLOOD THYROID STIMULATING HORMONE INCREASED [None]
  - CONSTIPATION [None]
  - DEPRESSION [None]
  - DIZZINESS [None]
  - GROWTH RETARDATION [None]
  - HEADACHE [None]
  - HOSTILITY [None]
  - LETHARGY [None]
  - LYMPHOCYTE COUNT INCREASED [None]
  - PANIC ATTACK [None]
  - SUICIDAL IDEATION [None]
  - WEIGHT INCREASED [None]
